FAERS Safety Report 25627621 (Version 2)
Quarter: 2025Q3

REPORT INFORMATION
  Report Type: Report from Study
  Country: EU (occurrence: EU)
  Receive Date: 20250731
  Receipt Date: 20250805
  Transmission Date: 20251020
  Serious: Yes (Hospitalization)
  Sender: ASTELLAS
  Company Number: None

PATIENT
  Age: 63 Year
  Sex: Male
  Weight: 85.5 kg

DRUGS (1)
  1. PADCEV [Suspect]
     Active Substance: ENFORTUMAB VEDOTIN-EJFV
     Indication: Bladder transitional cell carcinoma stage IV
     Route: 042
     Dates: start: 20240515, end: 20250528

REACTIONS (1)
  - Pancreatitis acute [Not Recovered/Not Resolved]

NARRATIVE: CASE EVENT DATE: 20250610
